FAERS Safety Report 9806419 (Version 1)
Quarter: 2014Q1

REPORT INFORMATION
  Report Type: Spontaneous
  Country: US (occurrence: US)
  Receive Date: 20140109
  Receipt Date: 20140109
  Transmission Date: 20141002
  Serious: Yes (Death)
  Sender: FDA-Public Use
  Company Number: US-PFIZER INC-2014004711

PATIENT
  Age: 21 Year
  Sex: Male

DRUGS (8)
  1. OXYCODONE HYDROCHLORIDE [Suspect]
  2. VENLAFAXINE HCL [Suspect]
  3. METHADONE [Suspect]
  4. HYDROCODONE W/ACETAMINOPHEN [Suspect]
  5. CLONAZEPAM [Suspect]
  6. QUETIAPINE [Suspect]
  7. CITALOPRAM [Suspect]
  8. ARIPIPRAZOLE [Suspect]

REACTIONS (3)
  - Drug abuse [Fatal]
  - Cardiac arrest [Fatal]
  - Respiratory arrest [Fatal]
